FAERS Safety Report 4539950-4 (Version None)
Quarter: 2004Q4

REPORT INFORMATION
  Report Type: 
  Country: None (occurrence: None)
  Receive Date: 20041223
  Receipt Date: 20041210
  Transmission Date: 20050328
  Serious: Yes (Other)
  Sender: FDA-Public Use
  Company Number: 2004112576

PATIENT
  Age: 67 Year
  Sex: Male
  Weight: 80.7403 kg

DRUGS (10)
  1. TIKOSYN [Suspect]
     Indication: ATRIAL FIBRILLATION
     Dosage: 1000 MCG (500 MCG, 2 IN 1 D), ORAL
     Route: 048
     Dates: start: 20021001
  2. NORVASC [Suspect]
     Indication: ILL-DEFINED DISORDER
     Dates: start: 20030101
  3. LIPITOR [Suspect]
     Indication: ILL-DEFINED DISORDER
     Dates: start: 20030101, end: 20041206
  4. METOPROLOL TARTRATE [Concomitant]
  5. VALSARTAN (VALSARTAN) [Concomitant]
  6. RIBOFLAVIN (RIBOFLAVIN) [Concomitant]
  7. PYRIDOXINE HCL [Concomitant]
  8. CYANOCOBALAMIN (CYANOCOBALAMIN) [Concomitant]
  9. FOLIC ACID [Concomitant]
  10. ASPIRIN [Concomitant]

REACTIONS (7)
  - JOINT EFFUSION [None]
  - JOINT LOCK [None]
  - JOINT STIFFNESS [None]
  - MENISCUS LESION [None]
  - OEDEMA PERIPHERAL [None]
  - POLYMYALGIA RHEUMATICA [None]
  - POST PROCEDURAL COMPLICATION [None]
